FAERS Safety Report 7546345-8 (Version None)
Quarter: 2011Q2

REPORT INFORMATION
  Report Type: 
  Country: None (occurrence: None)
  Receive Date: 20110614
  Receipt Date: 20090103
  Transmission Date: 20111010
  Serious: Yes (Death, Hospitalization)
  Sender: FDA-Public Use
  Company Number: PHHY2009DE00626

PATIENT
  Sex: Female

DRUGS (2)
  1. FLUOROURACIL [Concomitant]
     Indication: LUNG NEOPLASM MALIGNANT
     Dosage: UNK
     Route: 037
     Dates: start: 20081022, end: 20081207
  2. LETROZOLE [Suspect]
     Indication: BREAST CANCER
     Dosage: 2.5 MG, DAILY
     Route: 048
     Dates: start: 20081022

REACTIONS (4)
  - PNEUMOTHORAX [None]
  - PLEURAL EFFUSION [None]
  - NEOPLASM PROGRESSION [None]
  - DYSPNOEA [None]
